FAERS Safety Report 8844824 (Version 1)
Quarter: 2012Q4

REPORT INFORMATION
  Report Type: 
  Country: US (occurrence: US)
  Receive Date: 20121017
  Receipt Date: 20121017
  Transmission Date: 20130627
  Serious: No
  Sender: FDA-Public Use
  Company Number: US-BAUSCH-BL-2012-000232

PATIENT
  Sex: Female

DRUGS (2)
  1. LATANOPROST OPHTHALMIC SOLUTION 0.005% [Suspect]
     Indication: PRODUCT USED FOR UNKNOWN INDICATION
     Dosage: 1 Drop; Daily; Ophthalmic
     Route: 047
     Dates: start: 201111
  2. BRIMONIDINE TARTRATE/TIMOLOL MALEATE [Concomitant]
     Indication: PRODUCT USED FOR UNKNOWN INDICATION
     Dosage: 1 Drop, Twice a day; Ophthalmic
     Route: 047
     Dates: start: 201112

REACTIONS (3)
  - Ocular hyperaemia [Recovering/Resolving]
  - Eye swelling [Recovering/Resolving]
  - Eye irritation [Recovering/Resolving]
